FAERS Safety Report 17664889 (Version 1)
Quarter: 2020Q2

REPORT INFORMATION
  Report Type: Spontaneous
  Country: US (occurrence: US)
  Receive Date: 20200414
  Receipt Date: 20200414
  Transmission Date: 20200713
  Serious: No
  Sender: FDA-Public Use
  Company Number: US-PFIZER INC-2020150211

PATIENT
  Age: 42 Year
  Sex: Female

DRUGS (6)
  1. COD LIVER OIL [Concomitant]
     Active Substance: COD LIVER OIL
     Dosage: UNK
  2. ECHINACEA ANGUSTIFOLIA [Concomitant]
     Active Substance: ECHINACEA ANGUSTIFOLIA
     Dosage: 350 MG, UNK
  3. GARLIC [ALLIUM SATIVUM] [Concomitant]
     Active Substance: GARLIC
     Dosage: 1000 MG, UNK
  4. FASLODEX [Concomitant]
     Active Substance: FULVESTRANT
     Dosage: UNK [250 MG/5ML SYRINGE]
  5. XARELTO [Concomitant]
     Active Substance: RIVAROXABAN
     Dosage: 10 MG, UNK
  6. IBRANCE [Suspect]
     Active Substance: PALBOCICLIB
     Indication: BREAST CANCER FEMALE
     Dosage: 125 MG, CYCLIC (1 DAILY FOR 21 DAYS)
     Route: 048
     Dates: start: 20200302

REACTIONS (6)
  - Fall [Unknown]
  - Rib fracture [Unknown]
  - Sensory loss [Unknown]
  - Platelet count decreased [Unknown]
  - Hypoaesthesia [Unknown]
  - Balance disorder [Unknown]

NARRATIVE: CASE EVENT DATE: 2020
